FAERS Safety Report 12482227 (Version 1)
Quarter: 2016Q2

REPORT INFORMATION
  Report Type: Report from Study
  Country: CA (occurrence: CA)
  Receive Date: 20160620
  Receipt Date: 20160620
  Transmission Date: 20160815
  Serious: Yes (Death)
  Sender: FDA-Public Use
  Company Number: PHHY2015CA150863

PATIENT
  Age: 52 Year
  Sex: Female

DRUGS (3)
  1. SANDOSTATIN LAR DEPOT [Suspect]
     Active Substance: OCTREOTIDE ACETATE
     Indication: PANCREATIC NEUROENDOCRINE TUMOUR
     Dosage: 30 MG, QMO (EVERY 4 WEEKS)
     Route: 030
     Dates: start: 20151016, end: 20160113
  2. BISOPROLOL [Concomitant]
     Active Substance: BISOPROLOL
     Indication: PRODUCT USED FOR UNKNOWN INDICATION
     Dosage: 5 MG, QD
     Route: 065
  3. ASPIRIN. [Concomitant]
     Active Substance: ASPIRIN
     Indication: PRODUCT USED FOR UNKNOWN INDICATION
     Dosage: 81 MG, QD
     Route: 065

REACTIONS (12)
  - Abdominal distension [Unknown]
  - Dyspnoea [Unknown]
  - Abdominal discomfort [Unknown]
  - Nausea [Unknown]
  - Thrombosis [Unknown]
  - Blood pressure diastolic increased [Unknown]
  - Faeces pale [Unknown]
  - Injection site mass [Unknown]
  - Abdominal pain [Unknown]
  - Fatigue [Unknown]
  - Death [Fatal]
  - Infection [Unknown]

NARRATIVE: CASE EVENT DATE: 2015
